FAERS Safety Report 19258986 (Version 2)
Quarter: 2021Q2

REPORT INFORMATION
  Report Type: Spontaneous
  Country: FR (occurrence: FR)
  Receive Date: 20210514
  Receipt Date: 20210628
  Transmission Date: 20210717
  Serious: Yes (Other)
  Sender: FDA-Public Use
  Company Number: FR-ORGANON-O2105FRA000534

PATIENT
  Age: 91 Year
  Sex: Male

DRUGS (7)
  1. SINEMET L.P. [Suspect]
     Active Substance: CARBIDOPA\LEVODOPA
     Indication: PARKINSON^S DISEASE
     Dosage: 9 DOSAGE FORM, QD (PER DAY)
     Route: 048
  2. ALLOPURINOL. [Concomitant]
     Active Substance: ALLOPURINOL
     Dosage: UNK
  3. DUTASTERIDE. [Concomitant]
     Active Substance: DUTASTERIDE
     Dosage: UNK
  4. STALEVO [Suspect]
     Active Substance: CARBIDOPA\ENTACAPONE\LEVODOPA
     Indication: PARKINSON^S DISEASE
     Dosage: (STRENGTH: 100 MG/25 MG/200 MG), 9 TABLETS PER DAY (3 TABLETS ON THE MORNING, THREE AT NOON AND THRE
     Route: 048
     Dates: start: 20210501, end: 20210502
  5. TAMSULOSIN [Concomitant]
     Active Substance: TAMSULOSIN
     Dosage: UNK
  6. DESLORATADINE. [Concomitant]
     Active Substance: DESLORATADINE
     Dosage: UNK
  7. OMEPRAZOLE. [Concomitant]
     Active Substance: OMEPRAZOLE
     Dosage: UNK

REACTIONS (4)
  - Wrong product administered [Unknown]
  - Product dose omission in error [Unknown]
  - Parkinson^s disease [Unknown]
  - Malaise [Unknown]

NARRATIVE: CASE EVENT DATE: 202105
